FAERS Safety Report 14611852 (Version 4)
Quarter: 2019Q2

REPORT INFORMATION
  Report Type: Spontaneous
  Country: US (occurrence: US)
  Receive Date: 20180308
  Receipt Date: 20190513
  Transmission Date: 20190711
  Serious: Yes (Other)
  Sender: FDA-Public Use
  Company Number: US-ASTRAZENECA-2018SE27881

PATIENT
  Age: 22230 Day
  Sex: Female
  Weight: 82.6 kg

DRUGS (93)
  1. NEXIUM [Suspect]
     Active Substance: ESOMEPRAZOLE MAGNESIUM
     Indication: GASTROOESOPHAGEAL REFLUX DISEASE
     Route: 048
     Dates: start: 200611, end: 201209
  2. NEXIUM [Suspect]
     Active Substance: ESOMEPRAZOLE MAGNESIUM
     Indication: DYSPEPSIA
     Route: 048
     Dates: start: 200611, end: 201209
  3. NEXIUM [Suspect]
     Active Substance: ESOMEPRAZOLE MAGNESIUM
     Indication: ABDOMINAL DISCOMFORT
     Dosage: GENERIC
     Route: 065
     Dates: start: 2015
  4. NEXIUM [Suspect]
     Active Substance: ESOMEPRAZOLE MAGNESIUM
     Indication: DYSPEPSIA
     Dosage: GENERIC
     Route: 065
     Dates: start: 2015
  5. PROTONIX [Suspect]
     Active Substance: PANTOPRAZOLE SODIUM
     Indication: ABDOMINAL DISCOMFORT
     Route: 065
     Dates: start: 200601, end: 200602
  6. PROTONIX [Suspect]
     Active Substance: PANTOPRAZOLE SODIUM
     Indication: GASTROOESOPHAGEAL REFLUX DISEASE
     Route: 065
     Dates: start: 201410, end: 201505
  7. PREVACID [Suspect]
     Active Substance: LANSOPRAZOLE
     Route: 065
  8. HEPARIN SODIUM. [Concomitant]
     Active Substance: HEPARIN SODIUM
     Indication: PROPHYLAXIS
     Route: 058
  9. FUROSEMIDE. [Concomitant]
     Active Substance: FUROSEMIDE
     Indication: DIURETIC THERAPY
  10. LEVOFLOXACIN. [Concomitant]
     Active Substance: LEVOFLOXACIN
     Indication: ANTIBIOTIC THERAPY
  11. PENICILLIN [Concomitant]
     Active Substance: PENICILLIN
     Indication: ANTIBIOTIC THERAPY
  12. NEXIUM [Suspect]
     Active Substance: ESOMEPRAZOLE MAGNESIUM
     Indication: DYSPEPSIA
     Dosage: GENERIC
     Route: 065
     Dates: start: 200601, end: 200602
  13. NEXIUM [Suspect]
     Active Substance: ESOMEPRAZOLE MAGNESIUM
     Indication: GASTROOESOPHAGEAL REFLUX DISEASE
     Dosage: GENERIC
     Route: 065
     Dates: start: 2015
  14. NEXIUM 24HR [Suspect]
     Active Substance: ESOMEPRAZOLE MAGNESIUM
     Indication: ABDOMINAL DISCOMFORT
     Route: 048
     Dates: start: 2015
  15. NEXIUM 24HR [Suspect]
     Active Substance: ESOMEPRAZOLE MAGNESIUM
     Indication: GASTROOESOPHAGEAL REFLUX DISEASE
     Route: 048
     Dates: start: 2015
  16. PRILOSEC [Suspect]
     Active Substance: OMEPRAZOLE MAGNESIUM
     Indication: ABDOMINAL DISCOMFORT
     Route: 048
     Dates: start: 2012, end: 2016
  17. PRILOSEC [Suspect]
     Active Substance: OMEPRAZOLE MAGNESIUM
     Indication: GASTROOESOPHAGEAL REFLUX DISEASE
     Dosage: GENERIC
     Route: 065
     Dates: start: 2012, end: 2016
  18. PROTONIX [Suspect]
     Active Substance: PANTOPRAZOLE SODIUM
     Indication: GASTROOESOPHAGEAL REFLUX DISEASE
     Route: 065
     Dates: start: 200601, end: 200602
  19. CEPHALEXIN. [Concomitant]
     Active Substance: CEPHALEXIN
     Indication: ANTIBIOTIC THERAPY
  20. CIPROFLOXACIN. [Concomitant]
     Active Substance: CIPROFLOXACIN
     Indication: ANTIBIOTIC THERAPY
  21. PRILOSEC [Suspect]
     Active Substance: OMEPRAZOLE MAGNESIUM
     Indication: DYSPEPSIA
     Route: 048
     Dates: start: 2012, end: 2016
  22. PRILOSEC [Suspect]
     Active Substance: OMEPRAZOLE MAGNESIUM
     Indication: DYSPEPSIA
     Dosage: GENERIC
     Route: 065
     Dates: start: 2012, end: 2016
  23. PROTONIX [Suspect]
     Active Substance: PANTOPRAZOLE SODIUM
     Indication: ABDOMINAL DISCOMFORT
     Route: 065
     Dates: start: 201410, end: 201505
  24. PROTONIX [Suspect]
     Active Substance: PANTOPRAZOLE SODIUM
     Indication: ABDOMINAL DISCOMFORT
     Route: 065
     Dates: start: 2015
  25. PROTONIX [Suspect]
     Active Substance: PANTOPRAZOLE SODIUM
     Indication: GASTROOESOPHAGEAL REFLUX DISEASE
     Dosage: GENERIC
     Route: 065
     Dates: start: 2007
  26. PROTONIX [Suspect]
     Active Substance: PANTOPRAZOLE SODIUM
     Indication: DYSPEPSIA
     Dosage: GENERIC
     Route: 065
     Dates: start: 2007
  27. ATORVASTATIN CALCIUM. [Concomitant]
     Active Substance: ATORVASTATIN CALCIUM
     Route: 048
     Dates: start: 20140609
  28. VOLTAREN 1% GEL 3X100GM [Concomitant]
     Indication: PAIN
     Dosage: APPL Y 2 GRAMS TO AFFECTED AREAS FOUR TIMES DAILY AS NEEDED FOR PAIN
     Dates: start: 20140620
  29. SENNA PLUS [Concomitant]
     Active Substance: DOCUSATE SODIUM\SENNOSIDES\SENNOSIDES A AND B
     Route: 048
     Dates: start: 20180614
  30. ALLOPURINOL. [Concomitant]
     Active Substance: ALLOPURINOL
     Indication: GOUT
     Dosage: ONCE/SINGLE ADMINISTRATION
     Route: 048
  31. MULTIVITAMIN [Concomitant]
     Active Substance: VITAMINS
     Indication: NUTRITIONAL SUPPLEMENTATION
     Route: 048
  32. FLUZONE [Concomitant]
     Active Substance: INFLUENZA A VIRUS A/CALIFORNIA/7/2009 X-179A (H1N1) ANTIGEN (FORMALDEHYDE INACTIVATED)\INFLUENZA A VIRUS A/VICTORIA/210/2009 X-187 (H3N2) ANTIGEN (FORMALDEHYDE INACTIVATED)\INFLUENZA B VIRUS B/BRISBANE/60/2008 ANTIGEN (FORMALDEHYDE INACTIVATED)
     Indication: INFLUENZA
  33. SULFACETAMIDE. [Concomitant]
     Active Substance: SULFACETAMIDE
     Indication: ANTIBIOTIC THERAPY
  34. ZYMAR [Concomitant]
     Active Substance: GATIFLOXACIN
     Indication: ANTIBIOTIC THERAPY
  35. NEXIUM [Suspect]
     Active Substance: ESOMEPRAZOLE MAGNESIUM
     Indication: ABDOMINAL DISCOMFORT
     Route: 048
     Dates: start: 200611, end: 201209
  36. PRILOSEC [Suspect]
     Active Substance: OMEPRAZOLE MAGNESIUM
     Indication: GASTROOESOPHAGEAL REFLUX DISEASE
     Route: 048
     Dates: start: 2012, end: 2016
  37. PROTONIX [Suspect]
     Active Substance: PANTOPRAZOLE SODIUM
     Indication: DYSPEPSIA
     Route: 065
     Dates: start: 201410, end: 201505
  38. RANITIDINE. [Concomitant]
     Active Substance: RANITIDINE
     Route: 048
  39. NOVOLOG [Concomitant]
     Active Substance: INSULIN ASPART
     Indication: BLOOD INSULIN
     Dosage: INJECT 15 BY SUBCUTANEOUS ROUTE EVERY MEAL IF GLUC {100 THEN 10 UNITS, IF GLUC }200 HEN 20 UNITS
     Route: 058
     Dates: start: 20150112
  40. PANTOPRAZOLE SODIUM. [Concomitant]
     Active Substance: PANTOPRAZOLE SODIUM
     Indication: GASTROOESOPHAGEAL REFLUX DISEASE
     Route: 048
  41. VITAMIN D [Concomitant]
     Active Substance: VITAMIN D NOS
     Indication: NUTRITIONAL SUPPLEMENTATION
     Dates: start: 2003, end: 2018
  42. NOVOLIN [Concomitant]
     Active Substance: INSULIN HUMAN
     Indication: BLOOD INSULIN
  43. METOPROLOL. [Concomitant]
     Active Substance: METOPROLOL
     Indication: HYPERTENSION
  44. ATENOLOL. [Concomitant]
     Active Substance: ATENOLOL
     Indication: NUTRITIONAL SUPPLEMENTATION
  45. ACETAMINOPHEN. [Concomitant]
     Active Substance: ACETAMINOPHEN
     Indication: PAIN
  46. AMLODIPINE [Concomitant]
     Active Substance: AMLODIPINE BESYLATE
     Indication: HYPERTENSION
  47. ZYLOPRIM [Concomitant]
     Active Substance: ALLOPURINOL
  48. NEXIUM [Suspect]
     Active Substance: ESOMEPRAZOLE MAGNESIUM
     Indication: ABDOMINAL DISCOMFORT
     Route: 048
     Dates: start: 2008, end: 2015
  49. NEXIUM [Suspect]
     Active Substance: ESOMEPRAZOLE MAGNESIUM
     Indication: ABDOMINAL DISCOMFORT
     Route: 048
     Dates: start: 201410, end: 201505
  50. PRILOSEC [Suspect]
     Active Substance: OMEPRAZOLE MAGNESIUM
     Indication: ABDOMINAL DISCOMFORT
     Dosage: GENERIC
     Route: 065
     Dates: start: 2012, end: 2016
  51. PROTONIX [Suspect]
     Active Substance: PANTOPRAZOLE SODIUM
     Indication: DYSPEPSIA
     Route: 065
     Dates: start: 200611, end: 201209
  52. PROTONIX [Suspect]
     Active Substance: PANTOPRAZOLE SODIUM
     Indication: GASTROOESOPHAGEAL REFLUX DISEASE
     Route: 065
     Dates: start: 2006
  53. INSULIN [Concomitant]
     Active Substance: INSULIN NOS
     Dosage: INJECT INSULIN 4 TO 5 TIMES DAILY
     Dates: start: 20140611
  54. HEPARIN SODIUM. [Concomitant]
     Active Substance: HEPARIN SODIUM
     Indication: DEEP VEIN THROMBOSIS
     Route: 058
  55. DOCUSATE SODIUM. [Concomitant]
     Active Substance: DOCUSATE SODIUM
     Dosage: AS REQUIRED
     Route: 048
  56. MECLIZINE HCL [Concomitant]
     Active Substance: MECLIZINE HYDROCHLORIDE
     Dosage: 1/2 TO 1 TABLET TID AS REQUIRED
     Route: 048
  57. AZITHROMYCIN ANHYDROUS. [Concomitant]
     Active Substance: AZITHROMYCIN ANHYDROUS
     Indication: ANTIBIOTIC THERAPY
  58. HYDROMORPHONE [Concomitant]
     Active Substance: HYDROMORPHONE
     Indication: PAIN
  59. ACETAZOLAMIDE. [Concomitant]
     Active Substance: ACETAZOLAMIDE
     Indication: DIURETIC THERAPY
  60. ANTIVERT [Concomitant]
     Active Substance: MECLIZINE HYDROCHLORIDE
  61. NEXIUM [Suspect]
     Active Substance: ESOMEPRAZOLE MAGNESIUM
     Indication: ABDOMINAL DISCOMFORT
     Dosage: GENERIC
     Route: 065
     Dates: start: 200601, end: 200602
  62. PROTONIX [Suspect]
     Active Substance: PANTOPRAZOLE SODIUM
     Indication: ABDOMINAL DISCOMFORT
     Route: 065
     Dates: start: 2006
  63. PROTONIX [Suspect]
     Active Substance: PANTOPRAZOLE SODIUM
     Indication: ABDOMINAL DISCOMFORT
     Dosage: GENERIC
     Route: 065
     Dates: start: 2007
  64. MIRALAX [Concomitant]
     Active Substance: POLYETHYLENE GLYCOL 3350
     Dosage: ONCE/SINGLE ADMINISTRATION
     Route: 048
  65. GABAPENTIN. [Concomitant]
     Active Substance: GABAPENTIN
     Indication: NEURALGIA
     Route: 048
     Dates: start: 20180614
  66. ONDANSETRON HYDROCHLORIDE. [Concomitant]
     Active Substance: ONDANSETRON HYDROCHLORIDE
     Dosage: EVERY 4 - 6 HOURS
     Route: 048
  67. TRADJENTA [Concomitant]
     Active Substance: LINAGLIPTIN
     Indication: DIABETES MELLITUS
     Dosage: ONCE/SINGLE ADMINISTRATION
     Route: 048
  68. COLCHICINE. [Concomitant]
     Active Substance: COLCHICINE
     Indication: ANTIINFLAMMATORY THERAPY
  69. NEXIUM [Suspect]
     Active Substance: ESOMEPRAZOLE MAGNESIUM
     Indication: GASTROOESOPHAGEAL REFLUX DISEASE
     Dosage: GENERIC
     Route: 065
     Dates: start: 200601, end: 200602
  70. NEXIUM [Suspect]
     Active Substance: ESOMEPRAZOLE MAGNESIUM
     Indication: GASTROOESOPHAGEAL REFLUX DISEASE
     Route: 048
     Dates: start: 2008, end: 2015
  71. NEXIUM [Suspect]
     Active Substance: ESOMEPRAZOLE MAGNESIUM
     Indication: GASTROOESOPHAGEAL REFLUX DISEASE
     Route: 048
     Dates: start: 201410, end: 201505
  72. NEXIUM [Suspect]
     Active Substance: ESOMEPRAZOLE MAGNESIUM
     Indication: DYSPEPSIA
     Route: 048
     Dates: start: 201410, end: 201505
  73. PROTONIX [Suspect]
     Active Substance: PANTOPRAZOLE SODIUM
     Indication: DYSPEPSIA
     Route: 065
     Dates: start: 200601, end: 200602
  74. PROTONIX [Suspect]
     Active Substance: PANTOPRAZOLE SODIUM
     Indication: DYSPEPSIA
     Route: 065
     Dates: start: 2006
  75. PROTONIX [Suspect]
     Active Substance: PANTOPRAZOLE SODIUM
     Indication: GASTROOESOPHAGEAL REFLUX DISEASE
     Route: 065
     Dates: start: 2015
  76. ALBUTEROL SULFATE. [Concomitant]
     Active Substance: ALBUTEROL SULFATE
     Dosage: INHALE 2 PUFF BY INHALATION ROUTE EVERY 4-6 HOURS AS NEEDED FOR LUNGS
     Dates: start: 20131113
  77. VENTOLIN [Concomitant]
     Active Substance: ALBUTEROL SULFATE
     Dosage: AS REQUIRED
  78. IBUPROFEN. [Concomitant]
     Active Substance: IBUPROFEN
     Indication: CLUSTER HEADACHE
  79. CLOPIDOGREL [Concomitant]
     Active Substance: CLOPIDOGREL BISULFATE
     Indication: DIURETIC THERAPY
  80. HYDRALAZINE [Concomitant]
     Active Substance: HYDRALAZINE HYDROCHLORIDE
     Indication: HYPERTENSION
  81. NEXIUM [Suspect]
     Active Substance: ESOMEPRAZOLE MAGNESIUM
     Indication: DYSPEPSIA
     Route: 048
     Dates: start: 2008, end: 2015
  82. PROTONIX [Suspect]
     Active Substance: PANTOPRAZOLE SODIUM
     Indication: ABDOMINAL DISCOMFORT
     Route: 065
     Dates: start: 200611, end: 201209
  83. PROTONIX [Suspect]
     Active Substance: PANTOPRAZOLE SODIUM
     Indication: GASTROOESOPHAGEAL REFLUX DISEASE
     Route: 065
     Dates: start: 200611, end: 201209
  84. PROTONIX [Suspect]
     Active Substance: PANTOPRAZOLE SODIUM
     Indication: DYSPEPSIA
     Route: 065
     Dates: start: 2015
  85. METOPROLOL SUCCINATE. [Concomitant]
     Active Substance: METOPROLOL SUCCINATE
     Route: 048
     Dates: start: 20140331
  86. LISINOPRIL. [Concomitant]
     Active Substance: LISINOPRIL
     Route: 048
     Dates: start: 20130426
  87. OXYCODONE HYDROCHLORIDE. [Concomitant]
     Active Substance: OXYCODONE HYDROCHLORIDE
     Indication: PAIN
     Route: 048
  88. CYCLOBENZAPRINE HYDROCHLORIDE. [Concomitant]
     Active Substance: CYCLOBENZAPRINE HYDROCHLORIDE
     Indication: MUSCLE SPASMS
     Dosage: 5.0MG AS REQUIRED
  89. FOLIC ACID. [Concomitant]
     Active Substance: FOLIC ACID
     Dosage: ONCE/SINGLE ADMINISTRATION
     Route: 048
  90. RANEXA [Concomitant]
     Active Substance: RANOLAZINE
     Route: 048
  91. REGLAN [Concomitant]
     Active Substance: METOCLOPRAMIDE HYDROCHLORIDE
     Dosage: TAKE 0.5 - 1 TABLET BY ORAL ROUTE 3 TIMES EVERY DAY WITH MEALS
     Dates: start: 20150213
  92. ISOSORBIDE. [Concomitant]
     Active Substance: ISOSORBIDE
     Indication: ANGINA UNSTABLE
  93. GLYBURIDE. [Concomitant]
     Active Substance: GLYBURIDE
     Indication: DIABETES MELLITUS
     Dates: start: 2006

REACTIONS (4)
  - Acute kidney injury [Unknown]
  - Renal failure [Unknown]
  - Chronic kidney disease [Not Recovered/Not Resolved]
  - Nephrogenic anaemia [Unknown]

NARRATIVE: CASE EVENT DATE: 20100830
